FAERS Safety Report 21266221 (Version 1)
Quarter: 2022Q3

REPORT INFORMATION
  Report Type: Spontaneous
  Country: PL (occurrence: PL)
  Receive Date: 20220829
  Receipt Date: 20220829
  Transmission Date: 20221026
  Serious: Yes (Hospitalization, Other)
  Sender: FDA-Public Use
  Company Number: PL-ROCHE-3157624

PATIENT
  Age: 25 Year
  Sex: Female

DRUGS (4)
  1. RITUXIMAB [Suspect]
     Active Substance: RITUXIMAB
     Indication: Product used for unknown indication
     Dosage: UNK
     Route: 065
  2. TOCILIZUMAB [Suspect]
     Active Substance: TOCILIZUMAB
     Indication: Product used for unknown indication
     Dosage: UNK
     Route: 065
     Dates: start: 201803, end: 2021
  3. COLCHICINE [Suspect]
     Active Substance: COLCHICINE
     Indication: Product used for unknown indication
     Dosage: UNK
     Route: 065
  4. SILTUXIMAB [Suspect]
     Active Substance: SILTUXIMAB
     Indication: Castleman^s disease
     Dosage: UNK
     Route: 065
     Dates: start: 202110

REACTIONS (15)
  - Relapsing fever [Unknown]
  - Lymphadenopathy [Unknown]
  - Amyloidosis [Unknown]
  - Lymphadenopathy [Unknown]
  - Rash erythematous [Unknown]
  - Lymphadenopathy mediastinal [Unknown]
  - Serum ferritin decreased [Unknown]
  - Inflammatory marker increased [Unknown]
  - Splenomegaly [Unknown]
  - Neutrophil count increased [Unknown]
  - Hepatomegaly [Unknown]
  - Arthralgia [Unknown]
  - Lymphadenopathy [Unknown]
  - C-reactive protein increased [Unknown]
  - Drug ineffective [Unknown]
